FAERS Safety Report 14463804 (Version 1)
Quarter: 2018Q1

REPORT INFORMATION
  Report Type: Spontaneous
  Country: GB (occurrence: GB)
  Receive Date: 20180130
  Receipt Date: 20180130
  Transmission Date: 20180509
  Serious: Yes (Life-Threatening)
  Sender: FDA-Public Use
  Company Number: GB-009507513-1801GBR013052

PATIENT
  Age: 71 Year
  Sex: Female
  Weight: 43 kg

DRUGS (2)
  1. ALENDRONATE SODIUM. [Suspect]
     Active Substance: ALENDRONATE SODIUM
     Dates: start: 20170712
  2. CALCIUM D (CALCIUM CARBONATE (+) CALCIUM CITRATE (+) CHOLECALCIFEROL) [Concomitant]
     Dosage: TAKE ONE DAILY ON THE 6 DAYS OF THE WEEK
     Dates: start: 20170712

REACTIONS (1)
  - Anaphylactic reaction [Recovered/Resolved]

NARRATIVE: CASE EVENT DATE: 20180115
